FAERS Safety Report 11992886 (Version 1)
Quarter: 2016Q1

REPORT INFORMATION
  Report Type: Spontaneous
  Country: US (occurrence: US)
  Receive Date: 20160203
  Receipt Date: 20160203
  Transmission Date: 20160526
  Serious: No
  Sender: FDA-Public Use
  Company Number: US-UCBSA-2015009834

PATIENT
  Age: 25 Year
  Sex: Female
  Weight: 118.3 kg

DRUGS (3)
  1. KEPPRA [Suspect]
     Active Substance: LEVETIRACETAM
     Indication: SEIZURE
     Dosage: 1500 MG, 2X/DAY (BID), 500 MG 3 TABS IN AM AND 3 IN THE PM
     Route: 048
     Dates: start: 201004
  2. FOLIC ACID. [Concomitant]
     Active Substance: FOLIC ACID
     Indication: PRODUCT USED FOR UNKNOWN INDICATION
  3. PRENATAL VITAMINS [Concomitant]
     Active Substance: VITAMINS
     Indication: PREGNANCY
     Dosage: DAILY
     Route: 048

REACTIONS (5)
  - Obesity [Unknown]
  - Seizure [Unknown]
  - Pregnancy [Unknown]
  - Electroencephalogram abnormal [Unknown]
  - Snoring [Unknown]

NARRATIVE: CASE EVENT DATE: 20110914
